FAERS Safety Report 20486703 (Version 1)
Quarter: 2022Q1

REPORT INFORMATION
  Report Type: Spontaneous
  Country: US (occurrence: None)
  Receive Date: 20220217
  Receipt Date: 20220217
  Transmission Date: 20220423
  Serious: Yes (Hospitalization)
  Sender: FDA-Public Use
  Company Number: None

PATIENT
  Age: 34 Year
  Sex: Male
  Weight: 64.7 kg

DRUGS (4)
  1. CISPLATIN [Suspect]
     Active Substance: CISPLATIN
     Dates: end: 20200301
  2. IFOSFAMIDE [Suspect]
     Active Substance: IFOSFAMIDE
     Dates: end: 20200301
  3. TAXOL [Suspect]
     Active Substance: PACLITAXEL
     Dates: end: 20200226
  4. NEULASTA [Suspect]
     Active Substance: PEGFILGRASTIM
     Dates: end: 20200302

REACTIONS (2)
  - Blood creatine increased [None]
  - Renal procedural complication [None]

NARRATIVE: CASE EVENT DATE: 20200303
